FAERS Safety Report 8588535-1 (Version None)
Quarter: 2012Q3

REPORT INFORMATION
  Report Type: 
  Country: None (occurrence: None)
  Receive Date: 20120813
  Receipt Date: 20120806
  Transmission Date: 20120928
  Serious: Yes (Hospitalization)
  Sender: FDA-Public Use
  Company Number: DE-JNJFOC-20120113644

PATIENT
  Age: 55 Year
  Sex: Female

DRUGS (13)
  1. METHOTREXATE [Concomitant]
     Indication: RHEUMATOID ARTHRITIS
     Dates: start: 20070201
  2. METHOTREXATE [Concomitant]
     Dates: start: 20101001
  3. GOLIMUMAB [Suspect]
     Indication: RHEUMATOID ARTHRITIS
     Route: 058
     Dates: start: 20101001, end: 20110701
  4. METHOTREXATE [Concomitant]
     Dates: start: 20090901
  5. METHOTREXATE [Concomitant]
     Dates: start: 20110701
  6. METHOTREXATE [Concomitant]
     Dates: start: 20100401
  7. METHOTREXATE [Concomitant]
     Dates: start: 20090601
  8. SULFASALAZINE [Concomitant]
     Indication: RHEUMATOID ARTHRITIS
     Dates: start: 20100601, end: 20100901
  9. DISEASE MODIFYING ANTIRHEUMATIC DRUGS [Concomitant]
     Dates: start: 20110701
  10. GLUCOCORTICOIDS [Concomitant]
  11. SULFASALAZINE [Concomitant]
     Dates: start: 20110125
  12. TOCILIZUMAB [Concomitant]
     Dates: start: 20090601, end: 20100401
  13. IBUPROFEN [Concomitant]

REACTIONS (2)
  - LYMPHOEDEMA [None]
  - INTERVERTEBRAL DISC PROTRUSION [None]
